FAERS Safety Report 7516442-1 (Version None)
Quarter: 2011Q2

REPORT INFORMATION
  Report Type: 
  Country: None (occurrence: None)
  Receive Date: 20110601
  Receipt Date: 20110526
  Transmission Date: 20111010
  Serious: Yes (Hospitalization)
  Sender: FDA-Public Use
  Company Number: DK-B.I. PHARMACEUTICALS,INC./RIDGEFIELD-2011-SW-00227DB

PATIENT
  Sex: Male
  Weight: 81 kg

DRUGS (11)
  1. ASPIRIN [Suspect]
     Dosage: 150 MG
     Route: 048
     Dates: start: 20000628, end: 20030125
  2. ANAGRELIDE HCL [Suspect]
     Dosage: ALTERNATING BETWEEN A DAILY DOSE OF 1 MG AND 3.5 MG
     Route: 048
     Dates: start: 20000628, end: 20090302
  3. ASPIRIN [Suspect]
     Dosage: 75 MG
     Route: 048
     Dates: start: 20091230, end: 20100708
  4. HYDROXYUREA [Suspect]
     Dosage: 500 MG
     Route: 048
     Dates: start: 20090921, end: 20090922
  5. CITALOPRAM HYDROBROMIDE [Concomitant]
     Indication: DEPRESSION
     Dosage: 10 MG
     Route: 048
     Dates: start: 20030127
  6. ASPIRIN AND DIPYRIDAMOLE [Suspect]
     Dosage: STRENGTH 1DF. DAILY DOSE: 2DF
     Route: 048
     Dates: start: 20030127, end: 20050320
  7. ASPIRIN [Suspect]
     Indication: ESSENTIAL THROMBOCYTHAEMIA
     Dosage: 150 MG
     Route: 048
     Dates: start: 20030127, end: 20030320
  8. ANAGRELIDE HCL [Suspect]
     Dosage: 2 MG
     Route: 048
     Dates: start: 20090602, end: 20090921
  9. HYDROXYUREA [Suspect]
     Indication: ESSENTIAL THROMBOCYTHAEMIA
     Dosage: 500 MG
     Route: 048
     Dates: start: 20091012, end: 20091102
  10. ANAGRELIDE HCL [Suspect]
     Indication: ESSENTIAL THROMBOCYTHAEMIA
     Dosage: 1 MG
     Route: 048
     Dates: start: 20091109, end: 20091117
  11. ASPIRIN AND DIPYRIDAMOLE [Suspect]
     Indication: ESSENTIAL THROMBOCYTHAEMIA
     Dosage: STRENGTH + DAILY DOSE: 1DF
     Route: 048
     Dates: start: 20050320, end: 20090921

REACTIONS (2)
  - CARDIOMEGALY [None]
  - PERICARDIAL EFFUSION [None]
